FAERS Safety Report 6146478-7 (Version None)
Quarter: 2009Q2

REPORT INFORMATION
  Report Type: 
  Country: None (occurrence: None)
  Receive Date: 20090407
  Receipt Date: 20090331
  Transmission Date: 20091009
  Serious: Yes (Other)
  Sender: FDA-Public Use
  Company Number: B0544131A

PATIENT
  Sex: Female

DRUGS (3)
  1. SERETIDE [Suspect]
     Indication: CHRONIC OBSTRUCTIVE PULMONARY DISEASE
     Dosage: 1PUFF TWICE PER DAY
     Route: 055
     Dates: start: 20080901
  2. HRT [Concomitant]
     Indication: MENOPAUSE
     Dates: start: 19780101
  3. ANTIHISTAMINE [Concomitant]

REACTIONS (5)
  - COUGH [None]
  - IMMUNE SYSTEM DISORDER [None]
  - MACULAR DEGENERATION [None]
  - NASOPHARYNGITIS [None]
  - OROPHARYNGEAL PAIN [None]
